FAERS Safety Report 14345841 (Version 1)
Quarter: 2018Q1

REPORT INFORMATION
  Report Type: Spontaneous
  Country: VE (occurrence: VE)
  Receive Date: 20180103
  Receipt Date: 20180103
  Transmission Date: 20180509
  Serious: Yes (Other)
  Sender: FDA-Public Use
  Company Number: VE-BAYER-2017-248805

PATIENT
  Age: 48 Year
  Sex: Male
  Weight: 77 kg

DRUGS (1)
  1. NEXAVAR [Suspect]
     Active Substance: SORAFENIB
     Indication: PAPILLARY THYROID CANCER
     Dosage: 400 MG, BID
     Dates: start: 20150116, end: 201704

REACTIONS (6)
  - Metastases to pleura [None]
  - Metastases to neck [None]
  - Thyroglobulin increased [None]
  - Metastases to lung [None]
  - Thyroid cancer recurrent [None]
  - Papillary thyroid cancer [None]
